FAERS Safety Report 22029628 (Version 1)
Quarter: 2023Q1

REPORT INFORMATION
  Report Type: Spontaneous
  Country: US (occurrence: None)
  Receive Date: 20230221
  Receipt Date: 20230221
  Transmission Date: 20230417
  Serious: Yes (Other)
  Sender: FDA-Public Use
  Company Number: None

PATIENT
  Age: 23 Year
  Sex: Male
  Weight: 55.08 kg

DRUGS (1)
  1. PALIPERIDONE [Suspect]
     Active Substance: PALIPERIDONE
     Indication: Autism spectrum disorder
     Dates: start: 20230109, end: 20230117

REACTIONS (6)
  - Product substitution issue [None]
  - Aggression [None]
  - Aggression [None]
  - Self-injurious ideation [None]
  - Drug intolerance [None]
  - Abnormal behaviour [None]

NARRATIVE: CASE EVENT DATE: 20230109
